FAERS Safety Report 9520498 (Version 2)
Quarter: 2013Q3

REPORT INFORMATION
  Report Type: Spontaneous
  Country: SG (occurrence: SG)
  Receive Date: 20130913
  Receipt Date: 20130919
  Transmission Date: 20140515
  Serious: Yes (Other)
  Sender: FDA-Public Use
  Company Number: SG-009507513-1309SGP004882

PATIENT
  Age: 39 Year
  Sex: Female
  Weight: 45 kg

DRUGS (1)
  1. ORGALUTRAN [Suspect]
     Dosage: UNK UNK, QD
     Route: 058
     Dates: start: 20130811, end: 20130814

REACTIONS (1)
  - Blood luteinising hormone abnormal [Recovered/Resolved]
